FAERS Safety Report 25462629 (Version 1)
Quarter: 2025Q2

REPORT INFORMATION
  Report Type: Spontaneous
  Country: US (occurrence: None)
  Receive Date: 20250620
  Receipt Date: 20250620
  Transmission Date: 20250717
  Serious: Yes (Hospitalization)
  Sender: FDA-CTU
  Company Number: None

PATIENT
  Age: 42 Year
  Sex: Female

DRUGS (21)
  1. XOLAIR [Suspect]
     Active Substance: OMALIZUMAB
     Indication: Asthma
     Dosage: OTHER QUANTITY : 300MG/2ML;?FREQUENCY : MONTHLY;?
     Route: 058
     Dates: start: 20250523
  2. ALBUTEROL [Suspect]
     Active Substance: ALBUTEROL
  3. TRELEGY ELLIPTA [Suspect]
     Active Substance: FLUTICASONE FUROATE\UMECLIDINIUM BROMIDE\VILANTEROL TRIFENATATE
  4. PREDNISONE [Suspect]
     Active Substance: PREDNISONE
  5. AZITHROMYCIN [Suspect]
     Active Substance: AZITHROMYCIN
  6. SOOLANTRA [Suspect]
     Active Substance: IVERMECTIN
  7. ACETAMINOPHEN\HYDROCODONE [Suspect]
     Active Substance: ACETAMINOPHEN\HYDROCODONE
  8. VYVANSE [Suspect]
     Active Substance: LISDEXAMFETAMINE DIMESYLATE
  9. PROMETHAZINE [Suspect]
     Active Substance: PROMETHAZINE HYDROCHLORIDE
  10. PIMOZIDE [Suspect]
     Active Substance: PIMOZIDE
  11. FLUCONAZOLE [Suspect]
     Active Substance: FLUCONAZOLE
  12. ERYTHROMYCIN [Suspect]
     Active Substance: ERYTHROMYCIN
  13. PREGABALIN [Suspect]
     Active Substance: PREGABALIN
  14. ALBUTEROL\IPRATROPIUM [Suspect]
     Active Substance: ALBUTEROL\IPRATROPIUM
  15. BACLOFEN [Suspect]
     Active Substance: BACLOFEN
  16. CLONAZEPAM [Suspect]
     Active Substance: CLONAZEPAM
  17. LUBIPROSTONE [Suspect]
     Active Substance: LUBIPROSTONE
  18. PANTOPRAZOLE [Suspect]
     Active Substance: PANTOPRAZOLE
  19. FUROSEMIDE [Suspect]
     Active Substance: FUROSEMIDE
  20. BUPRENORPHINE [Suspect]
     Active Substance: BUPRENORPHINE
  21. TRULANCE [Suspect]
     Active Substance: PLECANATIDE

REACTIONS (2)
  - Sepsis [None]
  - Pneumonia [None]

NARRATIVE: CASE EVENT DATE: 20250501
